FAERS Safety Report 5468471-X (Version None)
Quarter: 2007Q3

REPORT INFORMATION
  Report Type: 
  Country: None (occurrence: None)
  Receive Date: 20070926
  Receipt Date: 20070719
  Transmission Date: 20080115
  Serious: No
  Sender: FDA-Public Use
  Company Number: US-BRISTOL-MYERS SQUIBB COMPANY-13813118

PATIENT
  Age: 57 Year
  Sex: Female
  Weight: 54 kg

DRUGS (3)
  1. ORENCIA [Suspect]
     Indication: RHEUMATOID ARTHRITIS
     Route: 042
     Dates: start: 20070501
  2. ACIPHEX [Concomitant]
  3. ESTRADIOL [Concomitant]

REACTIONS (5)
  - HEADACHE [None]
  - ORAL DISCOMFORT [None]
  - ORAL PAIN [None]
  - PAIN [None]
  - SOMNOLENCE [None]
